FAERS Safety Report 24843172 (Version 2)
Quarter: 2025Q1

REPORT INFORMATION
  Report Type: Report from Study
  Country: US (occurrence: US)
  Receive Date: 20250115
  Receipt Date: 20250207
  Transmission Date: 20250409
  Serious: Yes (Hospitalization)
  Sender: JAZZ
  Company Number: US-JAZZ PHARMACEUTICALS-2024-US-019921

PATIENT
  Sex: Female

DRUGS (3)
  1. XYWAV [Suspect]
     Active Substance: CALCIUM OXYBATE\MAGNESIUM OXYBATE\POTASSIUM OXYBATE\SODIUM OXYBATE
     Indication: Narcolepsy
     Dosage: 4.5 GRAM, BID (TWICE NIGHTLY)
     Route: 048
  2. XYWAV [Suspect]
     Active Substance: CALCIUM OXYBATE\MAGNESIUM OXYBATE\POTASSIUM OXYBATE\SODIUM OXYBATE
     Indication: Cataplexy
     Dosage: 3.75 GRAM, BID (TWICE NIGHTLY)
     Route: 048
  3. XYWAV [Suspect]
     Active Substance: CALCIUM OXYBATE\MAGNESIUM OXYBATE\POTASSIUM OXYBATE\SODIUM OXYBATE
     Indication: Somnolence
     Route: 048
     Dates: start: 20240928

REACTIONS (9)
  - Fall [Recovering/Resolving]
  - Rib fracture [Recovering/Resolving]
  - Concussion [Recovering/Resolving]
  - Wrist fracture [Recovering/Resolving]
  - Mallet finger [Recovering/Resolving]
  - Limb injury [Recovering/Resolving]
  - Cardiac pacemaker insertion [Recovering/Resolving]
  - Nail operation [Recovering/Resolving]
  - Weight decreased [Recovering/Resolving]
